FAERS Safety Report 11418781 (Version 1)
Quarter: 2015Q3

REPORT INFORMATION
  Report Type: Spontaneous
  Country: US (occurrence: None)
  Receive Date: 20150819
  Receipt Date: 20150819
  Transmission Date: 20151125
  Serious: Yes (Other)
  Sender: FDA-Public Use
  Company Number: 2015-14311

PATIENT
  Sex: Male

DRUGS (2)
  1. ANDROGEL [Suspect]
     Active Substance: TESTOSTERONE
     Indication: ANDROGEN REPLACEMENT THERAPY
  2. ANDRODERM [Suspect]
     Active Substance: TESTOSTERONE

REACTIONS (6)
  - Pain [None]
  - Emotional distress [None]
  - Anxiety [None]
  - Physical disability [None]
  - Myocardial infarction [None]
  - Quality of life decreased [None]
